FAERS Safety Report 11643236 (Version 1)
Quarter: 2015Q4

REPORT INFORMATION
  Report Type: Spontaneous
  Country: US (occurrence: US)
  Receive Date: 20151020
  Receipt Date: 20151020
  Transmission Date: 20160304
  Serious: No
  Sender: FDA-Public Use
  Company Number: US-PFIZER INC-2015323832

PATIENT
  Sex: Female

DRUGS (1)
  1. NITROSTAT [Suspect]
     Active Substance: NITROGLYCERIN
     Indication: MUSCLE SPASMS
     Dosage: UNK

REACTIONS (3)
  - Cardiac disorder [Unknown]
  - Therapeutic response unexpected [Unknown]
  - Off label use [Unknown]
